FAERS Safety Report 8511624 (Version 4)
Quarter: 2014Q4

REPORT INFORMATION
  Report Type: Spontaneous
  Country: US (occurrence: US)
  Receive Date: 20120413
  Receipt Date: 20141028
  Transmission Date: 20150529
  Serious: Yes (Hospitalization, Other)
  Sender: FDA-Public Use
  Company Number: US-ASTRAZENECA-2012SE09861

PATIENT
  Age: 68 Year
  Sex: Female
  Weight: 77.6 kg

DRUGS (18)
  1. LORAZAPAM [Concomitant]
     Active Substance: LORAZEPAM
     Indication: ANXIETY
     Dosage: TID PRN
     Route: 048
     Dates: start: 2012
  2. LASIX [Concomitant]
     Active Substance: FUROSEMIDE
     Indication: FLUID RETENTION
     Route: 048
     Dates: start: 2013
  3. METFORMIN [Concomitant]
     Active Substance: METFORMIN HYDROCHLORIDE
     Indication: DIABETES MELLITUS
     Route: 048
     Dates: start: 2012
  4. POTASSIUM [Concomitant]
     Active Substance: POTASSIUM
     Route: 048
     Dates: start: 2013
  5. HORMONE [Concomitant]
  6. TOPROL XL [Suspect]
     Active Substance: METOPROLOL SUCCINATE
     Indication: HYPERTENSION
     Route: 048
     Dates: end: 2014
  7. VITAMIN D [Concomitant]
     Active Substance: CHOLECALCIFEROL
     Indication: VITAMIN D DEFICIENCY
     Route: 048
     Dates: start: 2013
  8. HORMONE [Concomitant]
  9. PREDNISONE. [Suspect]
     Active Substance: PREDNISONE
     Indication: RHEUMATOID ARTHRITIS
     Route: 048
     Dates: start: 2004
  10. CLONIDINE. [Concomitant]
     Active Substance: CLONIDINE
     Indication: HYPERTENSION
     Route: 048
  11. LORAZAPAM [Concomitant]
     Active Substance: LORAZEPAM
     Indication: STRESS
     Dosage: TID PRN
     Route: 048
     Dates: start: 2012
  12. NEXIUM [Suspect]
     Active Substance: ESOMEPRAZOLE MAGNESIUM
     Route: 048
  13. ASPIRIN. [Concomitant]
     Active Substance: ASPIRIN
     Indication: ANTICOAGULANT THERAPY
     Route: 048
     Dates: start: 2013
  14. SHOTS [Concomitant]
     Indication: ARTHRITIS
  15. FOLIC ACID. [Concomitant]
     Active Substance: FOLIC ACID
     Indication: ADJUVANT THERAPY
     Route: 048
     Dates: start: 2004
  16. CRESTOR [Suspect]
     Active Substance: ROSUVASTATIN CALCIUM
     Indication: BLOOD CHOLESTEROL ABNORMAL
     Route: 048
  17. TOPROL XL [Suspect]
     Active Substance: METOPROLOL SUCCINATE
     Indication: HYPERTENSION
     Route: 048
     Dates: start: 2014
  18. METHOTREXATE [Concomitant]
     Active Substance: METHOTREXATE
     Indication: RHEUMATOID ARTHRITIS
     Dosage: UNKNOWN WEEK
     Route: 050
     Dates: start: 2004

REACTIONS (17)
  - Blood pressure increased [Unknown]
  - Diabetes mellitus [Unknown]
  - Dizziness [Unknown]
  - Fluid retention [Unknown]
  - Drug ineffective [Unknown]
  - Off label use [Unknown]
  - Blood pressure fluctuation [Unknown]
  - Vomiting [Unknown]
  - Rheumatoid arthritis [Unknown]
  - Fibromyalgia [Unknown]
  - Thrombosis [Unknown]
  - Weight decreased [Unknown]
  - Vitamin D decreased [Unknown]
  - Stress [Unknown]
  - Anxiety [Unknown]
  - Nasopharyngitis [Unknown]
  - Bursitis [Unknown]

NARRATIVE: CASE EVENT DATE: 201406
